FAERS Safety Report 8949504 (Version 1)
Quarter: 2012Q4

REPORT INFORMATION
  Report Type: 
  Country: US (occurrence: US)
  Receive Date: 20121206
  Receipt Date: 20121206
  Transmission Date: 20130627
  Serious: Yes (Hospitalization, Other)
  Sender: FDA-Public Use
  Company Number: US-PFIZER INC-2012303588

PATIENT
  Age: 59 Year
  Sex: Female

DRUGS (3)
  1. ENBREL [Suspect]
     Indication: RHEUMATOID ARTHRITIS
     Dosage: 50 mg, qwk
     Dates: start: 20090812
  2. ENBREL [Suspect]
     Indication: ANKYLOSING SPONDYLITIS
  3. METHOTREXATE SODIUM [Suspect]
     Dosage: 15 mg, qwk
     Route: 030
     Dates: start: 20090812

REACTIONS (9)
  - Sensory loss [Recovered/Resolved]
  - Knee arthroplasty [Recovered/Resolved]
  - Spondylitis [Recovered/Resolved]
  - Elbow operation [Recovered/Resolved]
  - Hepatic cyst [Recovered/Resolved]
  - Cholecystectomy [Recovered/Resolved]
  - Umbilical hernia [Recovered/Resolved]
  - Transfusion [Recovered/Resolved]
  - Liver function test abnormal [Recovered/Resolved]
